FAERS Safety Report 4827308-X (Version None)
Quarter: 2005Q4

REPORT INFORMATION
  Report Type: 
  Country: None (occurrence: None)
  Receive Date: 20051014
  Receipt Date: 20050803
  Transmission Date: 20060501
  Serious: No
  Sender: FDA-Public Use
  Company Number: 2005SP002213

PATIENT
  Age: 70 Year
  Sex: Male
  Weight: 99.7913 kg

DRUGS (4)
  1. LUNESTA [Suspect]
     Indication: INSOMNIA
     Dosage: 1 MG; HS; ORAL; SEE IMAGE
     Route: 048
     Dates: start: 20050802, end: 20050801
  2. LUNESTA [Suspect]
     Indication: INSOMNIA
     Dosage: 1 MG; HS; ORAL; SEE IMAGE
     Route: 048
     Dates: start: 20050801
  3. LEXAPRO [Concomitant]
  4. WARFARIN SODIUM [Concomitant]

REACTIONS (1)
  - INSOMNIA [None]
